FAERS Safety Report 12689147 (Version 1)
Quarter: 2016Q3

REPORT INFORMATION
  Report Type: Spontaneous
  Country: US (occurrence: None)
  Receive Date: 20160825
  Receipt Date: 20160825
  Transmission Date: 20161109
  Serious: No
  Sender: FDA-Public Use
  Company Number: None

PATIENT
  Age: 55 Year
  Sex: Female

DRUGS (1)
  1. IBRANCE [Suspect]
     Active Substance: PALBOCICLIB
     Indication: OESTROGEN RECEPTOR ASSAY POSITIVE
     Route: 048
     Dates: start: 20160718

REACTIONS (5)
  - Nausea [None]
  - Weight decreased [None]
  - Fatigue [None]
  - Decreased appetite [None]
  - Dysgeusia [None]

NARRATIVE: CASE EVENT DATE: 20160718
